FAERS Safety Report 9123820 (Version 2)
Quarter: 2013Q1

REPORT INFORMATION
  Report Type: Spontaneous
  Country: US (occurrence: US)
  Receive Date: 20130227
  Receipt Date: 20130305
  Transmission Date: 20140127
  Serious: No
  Sender: FDA-Public Use
  Company Number: US-PFIZER INC-2013067869

PATIENT
  Age: 54 Year
  Sex: Female
  Weight: 49.43 kg

DRUGS (1)
  1. EFFEXOR XR [Suspect]
     Indication: DEPRESSION
     Dosage: 150 MG, 1X/DAY
     Dates: start: 2008

REACTIONS (1)
  - Alopecia [Not Recovered/Not Resolved]
